FAERS Safety Report 16980313 (Version 2)
Quarter: 2021Q2

REPORT INFORMATION
  Report Type: Spontaneous
  Country: FR (occurrence: FR)
  Receive Date: 20191031
  Receipt Date: 20210423
  Transmission Date: 20210716
  Serious: Yes (Hospitalization)
  Sender: FDA-Public Use
  Company Number: FR-PFIZER INC-2019466674

PATIENT
  Age: 87 Year
  Sex: Male
  Weight: 69 kg

DRUGS (8)
  1. NOVONORM [Concomitant]
     Active Substance: REPAGLINIDE
     Route: 048
  2. CORTANCYL [Concomitant]
     Active Substance: PREDNISONE
     Route: 048
  3. DAIVOBET [Concomitant]
     Active Substance: BETAMETHASONE DIPROPIONATE\CALCIPOTRIENE
     Route: 003
  4. KARDEGIC [Concomitant]
     Active Substance: ASPIRIN DL-LYSINE
     Route: 048
  5. METFORMIN [Concomitant]
     Active Substance: METFORMIN HYDROCHLORIDE
     Route: 048
  6. VYNDAQEL [Suspect]
     Active Substance: TAFAMIDIS MEGLUMINE
     Indication: AMYLOIDOSIS SENILE
     Dosage: 20 MG, 1X/DAY
     Route: 048
     Dates: start: 201905
  7. CORTANCYL [Concomitant]
     Active Substance: PREDNISONE
     Route: 048
  8. LASILIX [FUROSEMIDE] [Concomitant]
     Active Substance: FUROSEMIDE
     Route: 048

REACTIONS (1)
  - Atrial fibrillation [Recovering/Resolving]

NARRATIVE: CASE EVENT DATE: 201908
